FAERS Safety Report 25450518 (Version 1)
Quarter: 2025Q2

REPORT INFORMATION
  Report Type: Other
  Country: ES (occurrence: ES)
  Receive Date: 20250618
  Receipt Date: 20250618
  Transmission Date: 20250716
  Serious: Yes (Hospitalization, Other)
  Sender: Steriscience PTE
  Company Number: ES-STERISCIENCE B.V.-2025-ST-001155

PATIENT
  Age: 52 Year
  Sex: Female

DRUGS (3)
  1. MEROPENEM [Suspect]
     Active Substance: MEROPENEM
     Indication: Meningitis
     Route: 042
     Dates: start: 20250113, end: 20250115
  2. VANCOMYCIN [Suspect]
     Active Substance: VANCOMYCIN
     Indication: Meningitis
     Route: 042
     Dates: start: 20250113, end: 20250115
  3. DOXAZOSIN [Concomitant]
     Active Substance: DOXAZOSIN MESYLATE
     Indication: Product used for unknown indication
     Route: 065
     Dates: start: 20250113

REACTIONS (4)
  - Toxic skin eruption [None]
  - Erythema [None]
  - Pruritus [None]
  - Eosinophilia [None]

NARRATIVE: CASE EVENT DATE: 20250114
